FAERS Safety Report 5907413-7 (Version None)
Quarter: 2008Q4

REPORT INFORMATION
  Report Type: 
  Country: None (occurrence: None)
  Receive Date: 20081003
  Receipt Date: 20080926
  Transmission Date: 20090506
  Serious: Yes (Hospitalization)
  Sender: FDA-Public Use
  Company Number: A0737693A

PATIENT
  Age: 7 Day
  Sex: Male
  Weight: 2.6 kg

DRUGS (5)
  1. MEPRON [Suspect]
     Indication: BABESIOSIS
     Dosage: 34MG TWICE PER DAY
     Route: 050
     Dates: start: 20080708, end: 20080719
  2. AZITHROMYCIN [Concomitant]
     Indication: BABESIOSIS
     Dosage: 17MG PER DAY
     Route: 050
     Dates: start: 20080708, end: 20080719
  3. CAFFEINE CITRATE [Concomitant]
     Dosage: 10MG PER DAY
     Route: 050
     Dates: start: 20080711, end: 20080804
  4. AMPICILLIN [Concomitant]
     Indication: SEPSIS
     Dosage: 170MG TWICE PER DAY
     Route: 042
     Dates: start: 20080707, end: 20080710
  5. GENTAMICIN [Concomitant]
     Indication: SEPSIS
     Dosage: 7.7MG ALTERNATE DAYS
     Route: 042
     Dates: start: 20080707, end: 20080710

REACTIONS (1)
  - OFF LABEL USE [None]
